FAERS Safety Report 7898442-5 (Version None)
Quarter: 2011Q4

REPORT INFORMATION
  Report Type: 
  Country: None (occurrence: None)
  Receive Date: 20111107
  Receipt Date: 20111030
  Transmission Date: 20120403
  Serious: Yes (Hospitalization)
  Sender: FDA-Public Use
  Company Number: US-ACTELION-A-US2011-56317

PATIENT

DRUGS (5)
  1. COUMADIN [Concomitant]
  2. CALCIUM CHANNEL BLOCKERS [Concomitant]
  3. OXYGEN [Concomitant]
  4. TRACLEER [Suspect]
     Indication: PULMONARY ARTERIAL HYPERTENSION
     Dosage: UNK
     Route: 048
     Dates: start: 20040201
  5. DIGOXIN [Concomitant]

REACTIONS (5)
  - APPLICATION SITE PRURITUS [None]
  - APPLICATION SITE ERYTHEMA [None]
  - HEADACHE [None]
  - MEDICAL DEVICE COMPLICATION [None]
  - NAUSEA [None]
